FAERS Safety Report 4324666-X (Version None)
Quarter: 2004Q1

REPORT INFORMATION
  Report Type: 
  Country: None (occurrence: None)
  Receive Date: 20040322
  Receipt Date: 20040308
  Transmission Date: 20041129
  Serious: Yes (Death, Disabling)
  Sender: FDA-Public Use
  Company Number: 2003AP04067

PATIENT
  Age: 72 Year
  Sex: Male

DRUGS (20)
  1. IRESSA [Suspect]
     Indication: ADENOCARCINOMA
     Dosage: 250 MG DAILY PO
     Route: 048
     Dates: start: 20030904, end: 20031115
  2. IRESSA [Suspect]
     Indication: NON-SMALL CELL LUNG CANCER RECURRENT
     Dosage: 250 MG DAILY PO
     Route: 048
     Dates: start: 20030904, end: 20031115
  3. CLARITH [Concomitant]
  4. PL GRAN. [Concomitant]
  5. TRANSAMIN [Concomitant]
  6. ISODINE [Concomitant]
  7. ONON [Concomitant]
  8. RIZE [Concomitant]
  9. ULGUT [Concomitant]
  10. MEDROL [Concomitant]
  11. MS CONTIN [Concomitant]
  12. PRIMPERAN INJ [Concomitant]
  13. MUCOSTA [Concomitant]
  14. LAXOBERON [Concomitant]
  15. SELTOUCH [Concomitant]
  16. CARBOPLATIN [Concomitant]
  17. PACLITAXEL [Concomitant]
  18. GEMCITABINE [Concomitant]
  19. VINORELBINE TARTRATE [Concomitant]
  20. IRINOTECAN [Concomitant]

REACTIONS (10)
  - ALANINE AMINOTRANSFERASE INCREASED [None]
  - ASPARTATE AMINOTRANSFERASE INCREASED [None]
  - CHEST X-RAY ABNORMAL [None]
  - DYSPNOEA [None]
  - GAMMA-GLUTAMYLTRANSFERASE INCREASED [None]
  - LUNG CONSOLIDATION [None]
  - LUNG DISORDER [None]
  - NASOPHARYNGITIS [None]
  - PNEUMOTHORAX [None]
  - PYREXIA [None]
